FAERS Safety Report 5786223-8 (Version None)
Quarter: 2008Q2

REPORT INFORMATION
  Report Type: 
  Country: None (occurrence: None)
  Receive Date: 20080624
  Receipt Date: 20070910
  Transmission Date: 20081010
  Serious: No
  Sender: FDA-Public Use
  Company Number: US-ASTRAZENECA-2007UW15882

PATIENT
  Age: 55 Year
  Sex: Male
  Weight: 70.3 kg

DRUGS (8)
  1. PULMICORT FLEXHALER [Suspect]
     Indication: ASTHMA
     Route: 055
     Dates: start: 20070701
  2. PULMICORT [Suspect]
     Route: 055
  3. SINGULAIR [Concomitant]
  4. FLORADIL [Concomitant]
  5. ALLEGRA [Concomitant]
  6. HYDROXYZINE [Concomitant]
  7. ASTELIN [Concomitant]
  8. PRILOSEC [Concomitant]
     Route: 048

REACTIONS (5)
  - CHEST DISCOMFORT [None]
  - DYSPNOEA [None]
  - EXERCISE TOLERANCE DECREASED [None]
  - THROAT TIGHTNESS [None]
  - WHEEZING [None]
